FAERS Safety Report 23180931 (Version 1)
Quarter: 2023Q4

REPORT INFORMATION
  Report Type: Spontaneous
  Country: US (occurrence: US)
  Receive Date: 20231114
  Receipt Date: 20231114
  Transmission Date: 20240109
  Serious: No
  Sender: FDA-Public Use
  Company Number: US-Merck Healthcare KGaA-2023483993

PATIENT
  Age: 80 Year
  Sex: Female

DRUGS (1)
  1. TEPMETKO [Suspect]
     Active Substance: TEPOTINIB HYDROCHLORIDE
     Indication: Lung neoplasm malignant
     Dosage: PM AFTER DINNER
     Dates: start: 20220218

REACTIONS (3)
  - COVID-19 [Unknown]
  - Bronchitis [Unknown]
  - Pharyngitis streptococcal [Unknown]
